FAERS Safety Report 5243961-3 (Version None)
Quarter: 2007Q1

REPORT INFORMATION
  Report Type: 
  Country: None (occurrence: None)
  Receive Date: 20070220
  Receipt Date: 20070220
  Transmission Date: 20070707
  Serious: Yes (Hospitalization)
  Sender: FDA-Public Use
  Company Number: None

PATIENT
  Age: 61 Year
  Sex: Male
  Weight: 128.368 kg

DRUGS (13)
  1. TIZANADINE 4 MG [Suspect]
     Indication: MUSCLE SPASMS
     Dosage: 8 MG TID PO
     Route: 048
     Dates: start: 20070203, end: 20070209
  2. GABAPENTIN [Suspect]
     Indication: MUSCLE SPASMS
     Dosage: 800 MG QID PO
     Route: 048
     Dates: start: 20041001, end: 20070216
  3. BACLOFEN [Concomitant]
  4. CITALOPRAM HYDROBROMIDE [Concomitant]
  5. PRAMIPEXOLE DIHYDROCHLORIDE [Concomitant]
  6. SIMVASTATIN [Concomitant]
  7. TOMSULOSIN [Concomitant]
  8. FOLIC ACID [Concomitant]
  9. IBUPROFEN [Concomitant]
  10. LISINOPRIL [Concomitant]
  11. POTASSIUM CHLORIDE [Concomitant]
  12. TEMAZEPAM [Concomitant]
  13. METOPROLOL SUCCINATE [Concomitant]

REACTIONS (1)
  - MENTAL STATUS CHANGES [None]
